FAERS Safety Report 8028659 (Version 2)
Quarter: 2020Q1

REPORT INFORMATION
  Report Type: Spontaneous
  Country: DE (occurrence: DE)
  Receive Date: 20110711
  Receipt Date: 20200220
  Transmission Date: 20200409
  Serious: Yes (Hospitalization, Other)
  Sender: FDA-Public Use
  Company Number: DE-PFIZER INC-2011152341

PATIENT
  Age: 79 Year
  Sex: Female

DRUGS (1)
  1. ZELDOX [Suspect]
     Active Substance: ZIPRASIDONE
     Dosage: 20 MG, DAILY
     Dates: start: 20090727, end: 201206

REACTIONS (34)
  - Hepatic function abnormal [Unknown]
  - Cardiac disorder [Unknown]
  - Dyspepsia [Unknown]
  - Neck pain [Unknown]
  - Hallucination, auditory [Unknown]
  - Fibromyalgia [Unknown]
  - Visual impairment [Unknown]
  - Facial pain [Unknown]
  - Chest pain [Unknown]
  - Gait disturbance [Unknown]
  - Oropharyngeal pain [Unknown]
  - Tongue discolouration [Unknown]
  - Nightmare [Unknown]
  - Arrhythmia [Unknown]
  - Fatigue [Unknown]
  - Eye pain [Unknown]
  - Blood pressure increased [Unknown]
  - Muscle rigidity [Unknown]
  - Dyspnoea [Unknown]
  - Feeding disorder [Unknown]
  - Ear pain [Unknown]
  - Nervous system disorder [Unknown]
  - Gingival pain [Unknown]
  - Rash [Unknown]
  - Dizziness [Unknown]
  - Somnolence [Unknown]
  - Sleep disorder [Unknown]
  - Headache [Unknown]
  - Rhinorrhoea [Unknown]
  - Cardiovascular disorder [Unknown]
  - Pain [Not Recovered/Not Resolved]
  - Pain in extremity [Unknown]
  - Eye pruritus [Unknown]
  - Acne [Unknown]

NARRATIVE: CASE EVENT DATE: 2009
